FAERS Safety Report 25915022 (Version 1)
Quarter: 2025Q4

REPORT INFORMATION
  Report Type: Spontaneous
  Country: CN (occurrence: CN)
  Receive Date: 20251013
  Receipt Date: 20251013
  Transmission Date: 20260117
  Serious: Yes (Hospitalization, Other)
  Sender: ACCORD
  Company Number: CN-Accord-507667

PATIENT
  Age: 47 Year
  Sex: Female

DRUGS (5)
  1. CISPLATIN [Suspect]
     Active Substance: CISPLATIN
     Indication: Acute lymphocytic leukaemia
     Dates: start: 202203
  2. ETOPOSIDE [Suspect]
     Active Substance: ETOPOSIDE
     Indication: Acute lymphocytic leukaemia
     Dates: start: 202203
  3. OXALIPLATIN [Suspect]
     Active Substance: OXALIPLATIN
     Indication: Acute lymphocytic leukaemia
     Dates: start: 202203
  4. DOXORUBICIN [Suspect]
     Active Substance: DOXORUBICIN
     Indication: Acute lymphocytic leukaemia
     Dates: start: 202203
  5. TEGAFUR [Suspect]
     Active Substance: TEGAFUR
     Indication: Acute lymphocytic leukaemia
     Dates: start: 202203

REACTIONS (2)
  - Hepatitis B [Recovered/Resolved]
  - Jaundice [Recovered/Resolved]

NARRATIVE: CASE EVENT DATE: 20220401
